FAERS Safety Report 15833040 (Version 1)
Quarter: 2018Q4

REPORT INFORMATION
  Report Type: Spontaneous
  Country: US (occurrence: US)
  Receive Date: 20181220
  Receipt Date: 20181220
  Transmission Date: 20190205
  Serious: Yes (Other)
  Sender: FDA-Public Use
  Company Number: None

PATIENT
  Age: 31 Year
  Sex: Male

DRUGS (1)
  1. CEFTAROLINE [Suspect]
     Active Substance: CEFTAROLINE
     Indication: INFECTION
     Route: 042
     Dates: start: 20181016, end: 20181020

REACTIONS (6)
  - Cognitive disorder [None]
  - Rash [None]
  - Angioedema [None]
  - Pyrexia [None]
  - Asthenia [None]
  - Eosinophilia [None]

NARRATIVE: CASE EVENT DATE: 20181020
